FAERS Safety Report 25048303 (Version 1)
Quarter: 2025Q1

REPORT INFORMATION
  Report Type: Spontaneous
  Country: US (occurrence: US)
  Receive Date: 20250307
  Receipt Date: 20250307
  Transmission Date: 20250409
  Serious: Yes (Other)
  Sender: CELLTRION
  Company Number: US-CELLTRION INC.-2025US006171

PATIENT

DRUGS (5)
  1. ADALIMUMAB [Suspect]
     Active Substance: ADALIMUMAB
     Indication: Rheumatoid arthritis
     Dosage: BIWEEKLY DOSE
  2. ADALIMUMAB [Suspect]
     Active Substance: ADALIMUMAB
     Dosage: BIWEEKLY DOSE
  3. ADALIMUMAB [Suspect]
     Active Substance: ADALIMUMAB
     Dosage: BIWEEKLY DOSE
  4. ADALIMUMAB [Suspect]
     Active Substance: ADALIMUMAB
     Dosage: BIWEEKLY DOSE
  5. ADALIMUMAB [Suspect]
     Active Substance: ADALIMUMAB
     Dosage: BIWEEKLY DOSE

REACTIONS (1)
  - Subacute inflammatory demyelinating polyneuropathy [Unknown]
